FAERS Safety Report 10020749 (Version 2)
Quarter: 2014Q2

REPORT INFORMATION
  Report Type: Spontaneous
  Country: KR (occurrence: None)
  Receive Date: 20131127
  Receipt Date: 20140401
  Transmission Date: 20141212
  Serious: Yes (Other)
  Sender: FDA-Public Use
  Company Number: PIN-2013-00044

PATIENT
  Sex: 0

DRUGS (2)
  1. PORFIMER SODIUM [Suspect]
     Indication: OESOPHAGEAL SQUAMOUS CELL CARCINOMA
  2. RADACHLORIN AND AMINOLEVULINIC ACID (ALA)-MEDIATED PDT [Concomitant]

REACTIONS (1)
  - Oesophageal stenosis [None]
